FAERS Safety Report 12963485 (Version 1)
Quarter: 2016Q4

REPORT INFORMATION
  Report Type: Spontaneous
  Country: FR (occurrence: FR)
  Receive Date: 20161122
  Receipt Date: 20161122
  Transmission Date: 20170207
  Serious: Yes (Life-Threatening, Hospitalization, Other)
  Sender: FDA-Public Use
  Company Number: FR-ACCORD-045625

PATIENT
  Age: 58 Year
  Sex: Female

DRUGS (10)
  1. DIFFU K [Concomitant]
     Active Substance: POTASSIUM CHLORIDE
     Dosage: ONE DOSAGE FORM (DF) IN THE MORNING AND ONE DF IN THE EVENING
  2. PROPRANOLOL [Concomitant]
     Active Substance: PROPRANOLOL\PROPRANOLOL HYDROCHLORIDE
     Dosage: IN THE MORNING
  3. PANTOPRAZOLE [Concomitant]
     Active Substance: PANTOPRAZOLE SODIUM
     Dosage: IN THE MORNING
  4. IMOVANE [Concomitant]
     Active Substance: ZOPICLONE
     Dosage: 7.5 MG??ONE DF AT BED TIME
  5. DOCETAXEL ACCORD [Suspect]
     Active Substance: DOCETAXEL
     Indication: INVASIVE DUCTAL BREAST CARCINOMA
     Dosage: STRENGTH:160 MG/8 ML
     Route: 042
     Dates: start: 20160715
  6. METFORMIN [Concomitant]
     Active Substance: METFORMIN HYDROCHLORIDE
     Dosage: ONE DF IN THE MORNING AND ONE DF IN THE EVENING
  7. GLUCOR [Concomitant]
     Active Substance: ACARBOSE
     Dosage: 50 MG
  8. LANTUS [Concomitant]
     Active Substance: INSULIN GLARGINE
     Dosage: 100 U/ ML?AT 8:00 P.M
     Route: 058
  9. NEOMERCAZOLE [Concomitant]
     Active Substance: CARBIMAZOLE
     Dosage: IN THE MORNING
  10. LASILIX [Concomitant]
     Active Substance: FUROSEMIDE
     Dosage: 60 MG?IN THE MORNING

REACTIONS (3)
  - Septic shock [Recovered/Resolved]
  - Palmar-plantar erythrodysaesthesia syndrome [Recovering/Resolving]
  - Febrile neutropenia [Recovered/Resolved]

NARRATIVE: CASE EVENT DATE: 201607
